FAERS Safety Report 10555412 (Version 6)
Quarter: 2016Q1

REPORT INFORMATION
  Report Type: Report from Study
  Country: AU (occurrence: AU)
  Receive Date: 20141030
  Receipt Date: 20160208
  Transmission Date: 20160525
  Serious: Yes (Death, Other)
  Sender: FDA-Public Use
  Company Number: AU-GLAXOSMITHKLINE-AU2014GSK008630

PATIENT
  Age: 68 Year
  Sex: Male
  Weight: 78 kg

DRUGS (39)
  1. RETIGABINE [Suspect]
     Active Substance: EZOGABINE
     Indication: EPILEPSY
     Dosage: UNK
     Dates: start: 20060705, end: 20140824
  2. RISPERIDONE. [Concomitant]
     Active Substance: RISPERIDONE
  3. MOVICOL [Concomitant]
     Active Substance: POLYETHYLENE GLYCOL 3350\POTASSIUM CHLORIDE\SODIUM BICARBONATE\SODIUM CHLORIDE
  4. AMPICILLIN [Concomitant]
     Active Substance: AMPICILLIN
  5. TRITACE [Concomitant]
     Active Substance: RAMIPRIL
  6. ATORVASTATINE [Concomitant]
     Active Substance: ATORVASTATIN
  7. NILSTAT [Concomitant]
     Active Substance: NYSTATIN
  8. DEXTROSE. [Concomitant]
     Active Substance: DEXTROSE
  9. CLEXANE [Concomitant]
     Active Substance: ENOXAPARIN SODIUM
  10. LYRICA [Concomitant]
     Active Substance: PREGABALIN
  11. DOXYCYCLINE. [Concomitant]
     Active Substance: DOXYCYCLINE
  12. FRUSEMIDE [Concomitant]
     Active Substance: FUROSEMIDE
  13. PANADEINE FORTE [Concomitant]
     Active Substance: ACETAMINOPHEN\CODEINE PHOSPHATE
  14. WARFARIN [Concomitant]
     Active Substance: WARFARIN
  15. CHLORVESCENT [Concomitant]
     Active Substance: POTASSIUM CHLORIDE
  16. DOCUSATE [Concomitant]
     Active Substance: DOCUSATE
  17. GENTAMYCIN [Concomitant]
     Active Substance: GENTAMICIN
  18. LIPEX [Concomitant]
     Active Substance: SIMVASTATIN
  19. DOMPERIDONE [Concomitant]
     Active Substance: DOMPERIDONE
  20. MULTIVITAMIN [Concomitant]
     Active Substance: VITAMINS
  21. POTASSIUM CHLORIDE. [Concomitant]
     Active Substance: POTASSIUM CHLORIDE
  22. LINCOMYCIN. [Concomitant]
     Active Substance: LINCOMYCIN
  23. BISOPROLOL [Concomitant]
     Active Substance: BISOPROLOL
  24. PARACETAMOL [Concomitant]
     Active Substance: ACETAMINOPHEN
  25. HALOPERIDOL. [Concomitant]
     Active Substance: HALOPERIDOL
  26. PERINDOPRIL [Concomitant]
     Active Substance: PERINDOPRIL
  27. LASIX [Concomitant]
     Active Substance: FUROSEMIDE
  28. DIGOXIN. [Concomitant]
     Active Substance: DIGOXIN
  29. FENTANYL. [Concomitant]
     Active Substance: FENTANYL
  30. BENZYLPENICILLIN SODIUM + PROCAINE PENICILLIN [Concomitant]
  31. TEGRETOL [Concomitant]
     Active Substance: CARBAMAZEPINE
  32. COVERSYL [Concomitant]
     Active Substance: PERINDOPRIL
  33. PANTOPRAZOLE [Concomitant]
     Active Substance: PANTOPRAZOLE SODIUM
  34. BUSCOPAN [Concomitant]
     Active Substance: BUTYLSCOPOLAMINE BROMIDE
  35. SENNA [Concomitant]
     Active Substance: SENNA LEAF\SENNOSIDES\SENNOSIDES A AND B
  36. CEFTRIAXONE. [Concomitant]
     Active Substance: CEFTRIAXONE
  37. ACICLOVIR [Concomitant]
     Active Substance: ACYCLOVIR
  38. MORPHINE [Concomitant]
     Active Substance: MORPHINE
  39. FISH OIL [Concomitant]
     Active Substance: FISH OIL

REACTIONS (2)
  - Septic shock [Fatal]
  - Cellulitis [Fatal]

NARRATIVE: CASE EVENT DATE: 20140824
